FAERS Safety Report 10012740 (Version 2)
Quarter: 2014Q2

REPORT INFORMATION
  Report Type: Spontaneous
  Country: US (occurrence: US)
  Receive Date: 20140314
  Receipt Date: 20140409
  Transmission Date: 20141212
  Serious: No
  Sender: FDA-Public Use
  Company Number: US-009507513-1403USA005781

PATIENT
  Sex: Male

DRUGS (4)
  1. DULERA [Suspect]
     Indication: CHRONIC OBSTRUCTIVE PULMONARY DISEASE
     Dosage: TWO PUFFS TWICE DAILY
     Route: 055
     Dates: start: 201312
  2. DULERA [Suspect]
     Indication: EMPHYSEMA
     Dosage: UNK
     Dates: start: 20121228
  3. DULERA [Suspect]
     Indication: NEOPLASM MALIGNANT
  4. PROVENTIL [Concomitant]
     Indication: DYSPNOEA
     Dosage: UNK

REACTIONS (4)
  - Dyspnoea [Unknown]
  - Drug dose omission [Unknown]
  - Product quality issue [Unknown]
  - Off label use [Unknown]
